FAERS Safety Report 7864297-8 (Version None)
Quarter: 2011Q4

REPORT INFORMATION
  Report Type: 
  Country: None (occurrence: None)
  Receive Date: 20111028
  Receipt Date: 20110425
  Transmission Date: 20120403
  Serious: No
  Sender: FDA-Public Use
  Company Number: US-GLAXOSMITHKLINE-A0924387A

PATIENT
  Age: 83 Year
  Sex: Female

DRUGS (3)
  1. SEREVENT [Suspect]
     Indication: CHRONIC OBSTRUCTIVE PULMONARY DISEASE
     Dosage: 1PUFF TWICE PER DAY
     Route: 055
     Dates: start: 19900101
  2. SINEMET [Concomitant]
  3. FLOVENT [Concomitant]

REACTIONS (1)
  - TENSION [None]
